FAERS Safety Report 25301882 (Version 2)
Quarter: 2025Q3

REPORT INFORMATION
  Report Type: Spontaneous
  Country: BR (occurrence: BR)
  Receive Date: 20250512
  Receipt Date: 20250902
  Transmission Date: 20251020
  Serious: Yes (Hospitalization, Other)
  Sender: BOEHRINGER INGELHEIM
  Company Number: BR-Komodo Health-a23aa000007NPMgAAO

PATIENT
  Age: 70 Year
  Sex: Female

DRUGS (4)
  1. MICARDIS HCT [Suspect]
     Active Substance: HYDROCHLOROTHIAZIDE\TELMISARTAN
     Indication: Hypertension
     Dosage: FORM STRENGTH: 80 MILLIGRAMS + 25 MILLIGRAMS.
  2. JANUVIA [Suspect]
     Active Substance: SITAGLIPTIN PHOSPHATE
     Indication: Diabetes mellitus
  3. ASPIRIN\DIHYDROXYALUMINUM AMINOACETATE ANHYDROUS\MAGNESIUM CARBONATE [Concomitant]
     Active Substance: ASPIRIN\DIHYDROXYALUMINUM AMINOACETATE ANHYDROUS\MAGNESIUM CARBONATE
     Indication: Blood viscosity increased
  4. ASPIRIN [Concomitant]
     Active Substance: ASPIRIN
     Indication: Blood viscosity increased

REACTIONS (17)
  - Angioplasty [Recovered/Resolved]
  - Coronary arterial stent insertion [Recovered/Resolved]
  - Myocardial infarction [Unknown]
  - Catheterisation cardiac [Recovered/Resolved]
  - Dysphonia [Not Recovered/Not Resolved]
  - Influenza [Not Recovered/Not Resolved]
  - Secretion discharge [Not Recovered/Not Resolved]
  - Cough [Not Recovered/Not Resolved]
  - Rhinorrhoea [Not Recovered/Not Resolved]
  - Insomnia [Not Recovered/Not Resolved]
  - Dyspnoea [Not Recovered/Not Resolved]
  - Diabetes mellitus [Not Recovered/Not Resolved]
  - Cardiac disorder [Not Recovered/Not Resolved]
  - Blood cholesterol increased [Not Recovered/Not Resolved]
  - Blood triglycerides increased [Not Recovered/Not Resolved]
  - Drug hypersensitivity [Unknown]
  - Product physical issue [Unknown]

NARRATIVE: CASE EVENT DATE: 20200101
